FAERS Safety Report 24009886 (Version 1)
Quarter: 2024Q2

REPORT INFORMATION
  Report Type: Spontaneous
  Country: US (occurrence: US)
  Receive Date: 20240625
  Receipt Date: 20240625
  Transmission Date: 20240716
  Serious: No
  Sender: FDA-Public Use
  Company Number: US-FERRINGPH-2024FE01898

PATIENT
  Age: 75 Year
  Sex: Male

DRUGS (1)
  1. REBYOTA [Suspect]
     Active Substance: DONOR HUMAN STOOL
     Indication: Product used for unknown indication
     Dosage: 150 ML, ONCE/SINGLE
     Route: 054
     Dates: start: 20240409, end: 20240409

REACTIONS (2)
  - Chills [Recovered/Resolved]
  - Confusional state [Recovered/Resolved]

NARRATIVE: CASE EVENT DATE: 20240414
